FAERS Safety Report 7124383-7 (Version None)
Quarter: 2010Q4

REPORT INFORMATION
  Report Type: 
  Country: None (occurrence: None)
  Receive Date: 20101126
  Receipt Date: 20101125
  Transmission Date: 20110411
  Serious: Yes (Death, Other)
  Sender: FDA-Public Use
  Company Number: PHHY2010IL80141

PATIENT
  Age: 60 Year
  Sex: Female

DRUGS (2)
  1. EXJADE [Suspect]
     Indication: IRON OVERLOAD
     Route: 048
  2. EXJADE [Suspect]
     Indication: THALASSAEMIA

REACTIONS (3)
  - ARRHYTHMIA [None]
  - DEATH [None]
  - PULMONARY HYPERTENSION [None]
